FAERS Safety Report 21725621 (Version 1)
Quarter: 2022Q4

REPORT INFORMATION
  Report Type: Spontaneous
  Country: US (occurrence: US)
  Receive Date: 20221214
  Receipt Date: 20221214
  Transmission Date: 20230112
  Serious: Yes (Death, Life-Threatening, Hospitalization, Other)
  Sender: FDA-Public Use
  Company Number: US-AMGEN-USASP2022213677

PATIENT

DRUGS (2)
  1. RITUXIMAB [Suspect]
     Active Substance: RITUXIMAB
     Indication: Myelin oligodendrocyte glycoprotein antibody-associated disease
     Dosage: UNK
     Route: 065
  2. RITUXIMAB [Suspect]
     Active Substance: RITUXIMAB
     Indication: Neuromyelitis optica spectrum disorder

REACTIONS (27)
  - Death [Fatal]
  - Breast cancer [Unknown]
  - Urosepsis [Fatal]
  - Neuromyelitis optica spectrum disorder [Unknown]
  - Myelin oligodendrocyte glycoprotein antibody-associated disease [Unknown]
  - Malignant melanoma [Unknown]
  - COVID-19 [Unknown]
  - Thyroid cancer [Unknown]
  - Hypogammaglobulinaemia [Unknown]
  - Infection [Fatal]
  - Pneumonia [Unknown]
  - Cellulitis [Unknown]
  - Lymphopenia [Unknown]
  - Neutropenia [Unknown]
  - Leukopenia [Unknown]
  - Neuroendocrine tumour [Unknown]
  - Herpes zoster [Unknown]
  - Upper respiratory tract infection [Unknown]
  - Urinary tract infection [Unknown]
  - Sinusitis [Unknown]
  - Bronchitis [Unknown]
  - Infusion related reaction [Unknown]
  - Drug effective for unapproved indication [Unknown]
  - Product dose omission issue [Unknown]
  - Drug ineffective for unapproved indication [Unknown]
  - Inappropriate schedule of product administration [Unknown]
  - Off label use [Unknown]
